FAERS Safety Report 17838720 (Version 1)
Quarter: 2020Q2

REPORT INFORMATION
  Report Type: Spontaneous
  Country: US (occurrence: US)
  Receive Date: 20200529
  Receipt Date: 20200529
  Transmission Date: 20200714
  Serious: No
  Sender: FDA-Public Use
  Company Number: US-UCBSA-2019042813

PATIENT

DRUGS (3)
  1. CIMZIA [Suspect]
     Active Substance: CERTOLIZUMAB PEGOL
     Indication: PRODUCT USED FOR UNKNOWN INDICATION
  2. MTX [METHOTREXATE] [Concomitant]
     Active Substance: METHOTREXATE SODIUM
     Indication: INFLAMMATORY BOWEL DISEASE
  3. FOLIC ACID. [Concomitant]
     Active Substance: FOLIC ACID
     Indication: INFLAMMATORY BOWEL DISEASE

REACTIONS (1)
  - Infection [Unknown]
